FAERS Safety Report 25853585 (Version 1)
Quarter: 2025Q3

REPORT INFORMATION
  Report Type: Spontaneous
  Country: US (occurrence: None)
  Receive Date: 20250926
  Receipt Date: 20250926
  Transmission Date: 20251020
  Serious: Yes (unspecified)
  Sender: FDA-CTU
  Company Number: None

PATIENT
  Age: 78 Year
  Sex: Female
  Weight: 69.3 kg

DRUGS (11)
  1. LEVOFLOXACIN [Suspect]
     Active Substance: LEVOFLOXACIN
     Indication: Upper respiratory tract infection bacterial
     Dosage: OTHER QUANTITY : 10 TABLET(S);?FREQUENCY : DAILY;?
     Route: 048
     Dates: start: 20250827, end: 20250905
  2. Sivistatin [Concomitant]
  3. LOSARTAN [Concomitant]
     Active Substance: LOSARTAN
  4. FAMOTIDINE [Concomitant]
     Active Substance: FAMOTIDINE
  5. DEVICE [Concomitant]
     Active Substance: DEVICE
  6. MINERALS\VITAMINS [Concomitant]
     Active Substance: MINERALS\VITAMINS
  7. VITAMIN D3 [Concomitant]
     Active Substance: CHOLECALCIFEROL
  8. COENZYME Q10 [Concomitant]
     Active Substance: DIETARY SUPPLEMENT\UBIDECARENONE
  9. MAGNESIUM [Concomitant]
     Active Substance: MAGNESIUM
  10. Calcium D-Mannose [Concomitant]
  11. Wild elderberry syrup [Concomitant]

REACTIONS (6)
  - Pruritus [None]
  - Skin burning sensation [None]
  - Pain of skin [None]
  - Drug ineffective [None]
  - Arthralgia [None]
  - Pain in extremity [None]

NARRATIVE: CASE EVENT DATE: 20250905
